FAERS Safety Report 8244004-X (Version None)
Quarter: 2012Q1

REPORT INFORMATION
  Report Type: 
  Country: None (occurrence: None)
  Receive Date: 20120329
  Receipt Date: 20120319
  Transmission Date: 20120608
  Serious: Yes (Hospitalization)
  Sender: FDA-Public Use
  Company Number: IT-TEVA-328920ISR

PATIENT
  Sex: Male

DRUGS (1)
  1. EPIRUBICIN [Suspect]
     Indication: BREAST CANCER
     Dosage: RECEIVED FOUR 21-DAY CYCLES

REACTIONS (1)
  - VENTRICULAR HYPOKINESIA [None]
